FAERS Safety Report 4757927-0 (Version None)
Quarter: 2005Q3

REPORT INFORMATION
  Report Type: 
  Country: None (occurrence: None)
  Receive Date: 20050831
  Receipt Date: 20050823
  Transmission Date: 20060218
  Serious: Yes (Hospitalization)
  Sender: FDA-Public Use
  Company Number: FR-ABBOTT-05P-056-0309143-00

PATIENT
  Age: 54 Year
  Sex: Male
  Weight: 98 kg

DRUGS (3)
  1. LIPANTHYL CAPSULES [Suspect]
     Indication: HYPERCHOLESTEROLAEMIA
     Route: 048
     Dates: start: 19860101, end: 20041101
  2. LIPANTHYL CAPSULES [Suspect]
     Route: 048
     Dates: start: 20041101, end: 20050701
  3. ANTI-INFLAMMATORY DRUGS [Concomitant]
     Indication: DRUG USE FOR UNKNOWN INDICATION
     Dates: start: 19980101

REACTIONS (3)
  - ADENOID CYSTIC CARCINOMA [None]
  - BLOOD CREATININE INCREASED [None]
  - PROSTATITIS [None]
